FAERS Safety Report 12980083 (Version 1)
Quarter: 2016Q4

REPORT INFORMATION
  Report Type: Spontaneous
  Country: DE (occurrence: DE)
  Receive Date: 20161128
  Receipt Date: 20161128
  Transmission Date: 20170207
  Serious: Yes (Other)
  Sender: FDA-Public Use
  Company Number: DE-ASTELLAS-2016US024193

PATIENT
  Age: 48 Year
  Sex: Female
  Weight: 47 kg

DRUGS (2)
  1. PROGRAF [Suspect]
     Active Substance: TACROLIMUS\TACROLIMUS ANHYDROUS
     Indication: LUNG TRANSPLANT
     Dosage: 0.5 MG, TWICE DAILY (1-0-1)
     Route: 065
     Dates: end: 20160621
  2. MODIGRAF [Suspect]
     Active Substance: TACROLIMUS
     Indication: LUNG TRANSPLANT
     Dosage: 0.2 MG, TWICE DAILY (2-0-2)
     Route: 065
     Dates: start: 20160621

REACTIONS (5)
  - Headache [Unknown]
  - Immunosuppressant drug level increased [Recovered/Resolved]
  - Off label use [Unknown]
  - Visual impairment [Unknown]
  - Tremor [Unknown]

NARRATIVE: CASE EVENT DATE: 20160621
